FAERS Safety Report 18664303 (Version 1)
Quarter: 2020Q4

REPORT INFORMATION
  Report Type: Spontaneous
  Country: DE (occurrence: DE)
  Receive Date: 20201225
  Receipt Date: 20201225
  Transmission Date: 20210114
  Serious: Yes (Hospitalization)
  Sender: FDA-Public Use
  Company Number: DE-TEVA-2020-DE-1860056

PATIENT
  Age: 68 Year
  Sex: Female

DRUGS (16)
  1. IMIPRAMIN [Suspect]
     Active Substance: IMIPRAMINE
     Dosage: 50 MILLIGRAM DAILY; 1-0-1-0
  2. SPIRIVA [Concomitant]
     Active Substance: TIOTROPIUM BROMIDE MONOHYDRATE
     Dosage: 18 MICROGRAM DAILY; 1-0-0-0
     Route: 055
  3. BISOPROLOL [Concomitant]
     Active Substance: BISOPROLOL
     Dosage: 2.5 MILLIGRAM DAILY; 0-1-0-0
  4. TORASEMID [Concomitant]
     Active Substance: TORSEMIDE
     Dosage: 10 MG, 2-1-0-0,
  5. PANTOPRAZOL [Concomitant]
     Active Substance: PANTOPRAZOLE SODIUM
     Dosage: 20 MILLIGRAM DAILY;  1-0-0-0
  6. ATORVASTATIN [Concomitant]
     Active Substance: ATORVASTATIN
     Dosage: 40 MILLIGRAM DAILY; 0-0-1-0
  7. MIRTAZAPIN [Suspect]
     Active Substance: MIRTAZAPINE
     Dosage: .5 DOSAGE FORMS DAILY; 30 MG, 0-0-0-0.5
  8. INSULIN GLARGIN [Concomitant]
     Active Substance: INSULIN GLARGINE
     Dosage: 5 IU (INTERNATIONAL UNIT) DAILY; 0-0-1-0
     Route: 058
  9. FORMATRIS 12MIKROGRAMM [Concomitant]
     Dosage: 24 MICROGRAM DAILY;  1-0-1-0
     Route: 055
  10. EISEN(II) [Concomitant]
     Dosage: 100 MILLIGRAM DAILY;  1-0-0-0
  11. CANDESARTAN. [Concomitant]
     Active Substance: CANDESARTAN
     Dosage: 4 MILLIGRAM DAILY;  1-0-0-0
  12. ASS 100 [Concomitant]
     Active Substance: ASPIRIN
     Dosage: 100 MILLIGRAM DAILY;  1-0-0-0
  13. INSULIN ASPART [Concomitant]
     Active Substance: INSULIN ASPART
     Dosage: ACCORDING TO BZ
     Route: 058
  14. TRAMADOL. [Concomitant]
     Active Substance: TRAMADOL
     Dosage: 50 MG, AS NEEDED
  15. ALLOPURINOL. [Concomitant]
     Active Substance: ALLOPURINOL
     Dosage: 100 MILLIGRAM DAILY; 1-0-0-0
  16. TILIDINE/NALOXONE [Concomitant]
     Active Substance: NALOXONE HYDROCHLORIDE\TILIDINE HYDROCHLORIDE
     Dosage: 4 | 50 MG, REQUIREMENT

REACTIONS (4)
  - Anuria [Unknown]
  - Cough [Unknown]
  - Urinary hesitation [Unknown]
  - Oedema peripheral [Unknown]
